FAERS Safety Report 8337728-7 (Version None)
Quarter: 2012Q2

REPORT INFORMATION
  Report Type: 
  Country: None (occurrence: None)
  Receive Date: 20120504
  Receipt Date: 20120426
  Transmission Date: 20120825
  Serious: Yes (Hospitalization)
  Sender: FDA-Public Use
  Company Number: FR-JNJFOC-20120413508

PATIENT
  Sex: Male

DRUGS (7)
  1. STREPSILS [Suspect]
     Indication: NASOPHARYNGITIS
     Route: 048
     Dates: start: 20120201, end: 20120201
  2. BIOMAG [Suspect]
     Indication: NASOPHARYNGITIS
     Route: 065
     Dates: start: 20120201, end: 20120201
  3. VALACYCLOVIR HYDROCHLORIDE [Suspect]
     Indication: ORAL HERPES
     Route: 048
     Dates: start: 20120201, end: 20120201
  4. ACTIFED [Suspect]
     Indication: NASOPHARYNGITIS
     Route: 048
     Dates: start: 20120201, end: 20120201
  5. ACTIFED [Suspect]
     Indication: SLEEP DISORDER THERAPY
     Route: 048
     Dates: start: 20120201, end: 20120201
  6. NIFLURIL [Suspect]
     Indication: NASOPHARYNGITIS
     Route: 048
     Dates: start: 20120201, end: 20120201
  7. ACTIFED [Suspect]
     Indication: NASOPHARYNGITIS
     Route: 048
     Dates: start: 20120201, end: 20120201

REACTIONS (5)
  - SKIN EXFOLIATION [None]
  - WHITE BLOOD CELL COUNT INCREASED [None]
  - RASH PAPULAR [None]
  - URTICARIA [None]
  - DERMATITIS BULLOUS [None]
